FAERS Safety Report 16059535 (Version 1)
Quarter: 2019Q1

REPORT INFORMATION
  Report Type: Spontaneous
  Country: US (occurrence: US)
  Receive Date: 20190311
  Receipt Date: 20190311
  Transmission Date: 20190418
  Serious: No
  Sender: FDA-Public Use
  Company Number: US-LUNDBECK-DKLU2061632

PATIENT
  Sex: Male

DRUGS (5)
  1. NORTHERA [Suspect]
     Active Substance: DROXIDOPA
     Route: 065
  2. NORTHERA [Suspect]
     Active Substance: DROXIDOPA
     Dosage: TAKING WITH A 200 MG CAPSULE
     Route: 065
  3. NORTHERA [Suspect]
     Active Substance: DROXIDOPA
     Route: 065
  4. NORTHERA [Suspect]
     Active Substance: DROXIDOPA
     Indication: PRODUCT USED FOR UNKNOWN INDICATION
     Route: 065
     Dates: start: 2008
  5. NORTHERA [Suspect]
     Active Substance: DROXIDOPA
     Dosage: TAKING WITH A 300 MG CAPSULE
     Route: 065

REACTIONS (5)
  - Hypotension [Unknown]
  - Fatigue [Unknown]
  - Neck pain [Unknown]
  - Therapeutic response decreased [Unknown]
  - Musculoskeletal pain [Unknown]
